FAERS Safety Report 8070255-3 (Version None)
Quarter: 2012Q1

REPORT INFORMATION
  Report Type: 
  Country: None (occurrence: None)
  Receive Date: 20120125
  Receipt Date: 20120120
  Transmission Date: 20120608
  Serious: Yes (Life-Threatening)
  Sender: FDA-Public Use
  Company Number: NO-EISAI INC-E2020-10249-SPO-NO

PATIENT
  Sex: Female

DRUGS (3)
  1. ARICEPT [Suspect]
     Dosage: UNKNOWN
     Route: 048
     Dates: end: 20120103
  2. SYMBICORT [Concomitant]
  3. FORMOTEROL FUMARATE [Concomitant]

REACTIONS (2)
  - NEUTROPENIA [None]
  - THROMBOCYTOPENIA [None]
